FAERS Safety Report 10286310 (Version 2)
Quarter: 2014Q3

REPORT INFORMATION
  Report Type: Spontaneous
  Country: AU (occurrence: AU)
  Receive Date: 20140709
  Receipt Date: 20140812
  Transmission Date: 20150326
  Serious: Yes (Hospitalization)
  Sender: FDA-Public Use
  Company Number: AU-AMGEN-AUSSP2014050343

PATIENT
  Sex: Female

DRUGS (1)
  1. ARANESP [Suspect]
     Active Substance: DARBEPOETIN ALFA
     Indication: NEPHROGENIC ANAEMIA
     Dosage: 30 MUG, QWK
     Route: 058
     Dates: start: 2014

REACTIONS (2)
  - Fluid overload [Unknown]
  - Cardiac failure [Unknown]
